FAERS Safety Report 4748528-9 (Version None)
Quarter: 2005Q3

REPORT INFORMATION
  Report Type: 
  Country: None (occurrence: None)
  Receive Date: 20050818
  Receipt Date: 20050805
  Transmission Date: 20060218
  Serious: Yes (Other)
  Sender: FDA-Public Use
  Company Number: 2005111673

PATIENT
  Sex: Female

DRUGS (2)
  1. CHILDREN'S SUDAFED NASAL DECONGESTANT (PSEUDOEPHEDRINE) [Suspect]
     Indication: NASAL CONGESTION
     Dosage: 2-3X DAILY, ORAL
     Route: 048
  2. THEOPHYLLINE [Concomitant]

REACTIONS (3)
  - DRUG DEPENDENCE [None]
  - PALPITATIONS [None]
  - TREMOR [None]
